FAERS Safety Report 20332654 (Version 2)
Quarter: 2024Q4

REPORT INFORMATION
  Report Type: Spontaneous
  Country: MX (occurrence: MX)
  Receive Date: 20220113
  Receipt Date: 20241209
  Transmission Date: 20250114
  Serious: Yes (Other)
  Sender: AMGEN
  Company Number: MX-AMGEN-MEXSP2022002573

PATIENT

DRUGS (3)
  1. ROMIPLOSTIM [Suspect]
     Active Substance: ROMIPLOSTIM
     Indication: Immune thrombocytopenia
     Dosage: 2 MICROGRAM/KILOGRAM, QWK (ON DAYS 1, 8, 15 AND 21)
     Route: 058
  2. RITUXIMAB [Suspect]
     Active Substance: RITUXIMAB
     Indication: Immune thrombocytopenia
     Dosage: 100 MILLIGRAM, QWK (FOUR DAYS- ON DAYS 1, 8, 15, 21)
     Route: 040
  3. DEXAMETHASONE [Suspect]
     Active Substance: DEXAMETHASONE
     Indication: Immune thrombocytopenia
     Dosage: 40 MILLIGRAM (ON DAYS 1-4)
     Route: 048

REACTIONS (7)
  - Immune thrombocytopenia [Unknown]
  - Thrombocytosis [Unknown]
  - Therapy partial responder [Unknown]
  - Therapy non-responder [Unknown]
  - Soft tissue infection [Unknown]
  - Myalgia [Unknown]
  - Off label use [Unknown]
